FAERS Safety Report 17746281 (Version 1)
Quarter: 2020Q2

REPORT INFORMATION
  Report Type: Spontaneous
  Country: RO (occurrence: RO)
  Receive Date: 20200505
  Receipt Date: 20200505
  Transmission Date: 20200714
  Serious: Yes (Death)
  Sender: FDA-Public Use
  Company Number: RO-ROCHE-2577096

PATIENT
  Age: 64 Year
  Sex: Female

DRUGS (3)
  1. ROACTEMRA [Suspect]
     Active Substance: TOCILIZUMAB
     Indication: ACUTE RESPIRATORY FAILURE
     Dosage: 2 VIALS OF 400 MG DAILY
     Route: 042
     Dates: start: 20200323
  2. ROACTEMRA [Suspect]
     Active Substance: TOCILIZUMAB
     Dosage: 2 VIALS OF 400 MG DAILY
     Route: 042
     Dates: start: 20200324
  3. ROACTEMRA [Suspect]
     Active Substance: TOCILIZUMAB
     Indication: COVID-19
     Route: 042
     Dates: start: 20200326

REACTIONS (3)
  - Death [Fatal]
  - Intentional product use issue [Unknown]
  - Off label use [Unknown]
